FAERS Safety Report 16160362 (Version 4)
Quarter: 2019Q4

REPORT INFORMATION
  Report Type: Spontaneous
  Country: GR (occurrence: GR)
  Receive Date: 20190404
  Receipt Date: 20191129
  Transmission Date: 20200122
  Serious: Yes (Death, Hospitalization, Other)
  Sender: FDA-Public Use
  Company Number: GR-009507513-1903GRC010529

PATIENT
  Age: 89 Year
  Sex: Female

DRUGS (4)
  1. CELESTONE CHRONODOSE [Suspect]
     Active Substance: BETAMETHASONE ACETATE\BETAMETHASONE SODIUM PHOSPHATE
     Indication: ARTHRITIS
     Dosage: THE 1ST INJECTION IN LEFT ARM SUBACROMIALLY
     Dates: start: 20190301
  2. LOPRESOR [Concomitant]
     Active Substance: METOPROLOL
     Indication: HYPERTENSION
     Dosage: UNK
  3. CELESTONE CHRONODOSE [Suspect]
     Active Substance: BETAMETHASONE ACETATE\BETAMETHASONE SODIUM PHOSPHATE
     Dosage: THE 2ND INJECTION IN LEFT ARM
     Dates: start: 20190315, end: 201903
  4. XYLOCAINE [Concomitant]
     Active Substance: LIDOCAINE HYDROCHLORIDE
     Dosage: SUBACROMIALLY
     Dates: start: 20190301

REACTIONS (9)
  - Incorrect route of product administration [Unknown]
  - Nosocomial infection [Fatal]
  - Dyspnoea [Unknown]
  - Chest pain [Recovered/Resolved]
  - Chest pain [Recovered/Resolved]
  - Drug ineffective [Unknown]
  - Lymphadenopathy [Unknown]
  - Injection site pain [Unknown]
  - Bone marrow infiltration [Unknown]

NARRATIVE: CASE EVENT DATE: 2019
